FAERS Safety Report 6601150-1 (Version None)
Quarter: 2010Q1

REPORT INFORMATION
  Report Type: 
  Country: None (occurrence: None)
  Receive Date: 20100217
  Receipt Date: 20100127
  Transmission Date: 20100710
  Serious: Yes (Other)
  Sender: FDA-Public Use
  Company Number: 1000011664

PATIENT
  Age: 48 Year
  Sex: Female

DRUGS (4)
  1. ESCITALOPRAM OXALATE [Suspect]
     Dosage: (10 MG,ONCE), ORAL
     Route: 048
     Dates: start: 20100127, end: 20100127
  2. LYRICA [Suspect]
     Dosage: (100 MG,ONCE), ORAL
     Route: 048
     Dates: start: 20100127, end: 20100127
  3. PROTHAZIN (25 MILLIGRAM, TABLETS) [Suspect]
     Dosage: (25 MG,ONCE), ORAL
     Route: 048
     Dates: start: 20100127, end: 20100127
  4. ZOPICLON (TABLETS) [Suspect]
     Dosage: (2 DOSAGE FORMS, ONCE), ORAL
     Route: 048
     Dates: start: 20100127, end: 20100127

REACTIONS (2)
  - DRUG ABUSE [None]
  - FATIGUE [None]
